FAERS Safety Report 8310427-3 (Version None)
Quarter: 2012Q2

REPORT INFORMATION
  Report Type: 
  Country: None (occurrence: None)
  Receive Date: 20120425
  Receipt Date: 20120416
  Transmission Date: 20120825
  Serious: Yes (Other)
  Sender: FDA-Public Use
  Company Number: AU-JNJFOC-20120400518

PATIENT
  Age: 71 Year
  Sex: Male

DRUGS (1)
  1. RISPERDAL [Suspect]
     Indication: ANXIETY
     Dosage: FOR ATLEAST 2 YEARS
     Route: 048

REACTIONS (1)
  - TOOTH EXTRACTION [None]
